FAERS Safety Report 8569110-1 (Version None)
Quarter: 2012Q3

REPORT INFORMATION
  Report Type: 
  Country: None (occurrence: None)
  Receive Date: 20120803
  Receipt Date: 20110922
  Transmission Date: 20120928
  Serious: No
  Sender: FDA-Public Use
  Company Number: US-ABBOTT-11P-163-0856914-00

PATIENT
  Sex: Female
  Weight: 79.45 kg

DRUGS (7)
  1. JANUMET [Concomitant]
     Indication: BLOOD GLUCOSE ABNORMAL
  2. LIPITOR [Concomitant]
     Indication: PRODUCT USED FOR UNKNOWN INDICATION
  3. ASPIRIN [Concomitant]
     Indication: PRODUCT USED FOR UNKNOWN INDICATION
  4. PLAVIX [Concomitant]
     Indication: PRODUCT USED FOR UNKNOWN INDICATION
  5. NIASPAN [Suspect]
     Indication: BLOOD TRIGLYCERIDES INCREASED
  6. NIASPAN [Suspect]
  7. ASPIRIN [Concomitant]

REACTIONS (1)
  - FLUSHING [None]
